FAERS Safety Report 19247172 (Version 1)
Quarter: 2021Q2

REPORT INFORMATION
  Report Type: Spontaneous
  Country: US (occurrence: US)
  Receive Date: 20210512
  Receipt Date: 20210512
  Transmission Date: 20210717
  Serious: Yes (Other)
  Sender: FDA-Public Use
  Company Number: None

PATIENT
  Age: 65 Year
  Sex: Female
  Weight: 45 kg

DRUGS (4)
  1. PROLIA [Suspect]
     Active Substance: DENOSUMAB
     Indication: OSTEOPOROSIS
     Dosage: ?          QUANTITY:1 INJECTION(S);OTHER FREQUENCY:EVERY 6 MONTHS;?
     Route: 058
     Dates: start: 20210112, end: 20210112
  2. TOPAMAX [Concomitant]
     Active Substance: TOPIRAMATE
  3. CALCIUM [Concomitant]
     Active Substance: CALCIUM
  4. SINGULAIR [Concomitant]
     Active Substance: MONTELUKAST SODIUM

REACTIONS (4)
  - Pain in extremity [None]
  - Fatigue [None]
  - Back pain [None]
  - Blood cholesterol increased [None]

NARRATIVE: CASE EVENT DATE: 20210201
